FAERS Safety Report 8167769-4 (Version None)
Quarter: 2012Q1

REPORT INFORMATION
  Report Type: 
  Country: None (occurrence: None)
  Receive Date: 20120227
  Receipt Date: 20120221
  Transmission Date: 20120608
  Serious: No
  Sender: FDA-Public Use
  Company Number: US-BAYER-2012-018450

PATIENT

DRUGS (1)
  1. ULTRAVIST 150 [Suspect]
     Dosage: UNK

REACTIONS (1)
  - MICTURITION URGENCY [None]
